FAERS Safety Report 7556769-0 (Version None)
Quarter: 2011Q2

REPORT INFORMATION
  Report Type: 
  Country: None (occurrence: None)
  Receive Date: 20110620
  Receipt Date: 20110607
  Transmission Date: 20111010
  Serious: Yes (Other)
  Sender: FDA-Public Use
  Company Number: US-ELI_LILLY_AND_COMPANY-US201102005525

PATIENT
  Sex: Male

DRUGS (15)
  1. CYMBALTA [Suspect]
     Dosage: 30 MG, UNK
     Dates: start: 20090119
  2. ZOLOFT [Concomitant]
     Dosage: UNK, UNKNOWN
     Route: 065
  3. CYMBALTA [Suspect]
     Indication: DEPRESSION
     Dosage: 30 MG, UNK
     Dates: start: 20080721
  4. CYMBALTA [Suspect]
     Dosage: 30 MG, QD
     Route: 048
     Dates: start: 20090223
  5. CYMBALTA [Suspect]
     Dosage: 60 MG, UNKNOWN
     Route: 048
     Dates: start: 20100723
  6. CYMBALTA [Suspect]
     Dosage: 60 MG, UNKNOWN
     Route: 048
     Dates: start: 20090628
  7. KLONOPIN [Concomitant]
     Indication: ANXIETY
  8. CYMBALTA [Suspect]
     Dosage: 60 MG, QD
     Route: 065
     Dates: start: 20090728
  9. CYMBALTA [Suspect]
     Dosage: 60 MG, UNKNOWN
     Route: 048
     Dates: start: 20100913
  10. AMBIEN [Concomitant]
     Dosage: UNK, UNKNOWN
     Route: 065
  11. CYMBALTA [Suspect]
     Dosage: 60 MG, UNK
     Route: 048
     Dates: start: 20090615
  12. CYMBALTA [Suspect]
     Dosage: 30 MG, UNK
     Dates: start: 20081007
  13. CYMBALTA [Suspect]
     Dosage: 60 MG, QD
     Route: 048
     Dates: start: 20090223, end: 20110214
  14. CYMBALTA [Suspect]
     Dosage: 30 MG, QD
     Route: 048
     Dates: start: 20090420
  15. PRISTIQ [Concomitant]
     Dosage: UNK, UNKNOWN
     Route: 065
     Dates: start: 20081204

REACTIONS (32)
  - PSYCHOMOTOR SKILLS IMPAIRED [None]
  - NERVOUS SYSTEM DISORDER [None]
  - MOOD ALTERED [None]
  - FEELING ABNORMAL [None]
  - ANXIETY [None]
  - MIGRAINE [None]
  - DRUG INEFFECTIVE [None]
  - SPEECH DISORDER [None]
  - ASTHENIA [None]
  - JOINT INJURY [None]
  - WHIPLASH INJURY [None]
  - PAIN [None]
  - ROAD TRAFFIC ACCIDENT [None]
  - BACK PAIN [None]
  - HYPOAESTHESIA [None]
  - IMPAIRED SELF-CARE [None]
  - ADVERSE EVENT [None]
  - DRUG WITHDRAWAL SYNDROME [None]
  - PARAESTHESIA [None]
  - APATHY [None]
  - IRRITABILITY [None]
  - IMPAIRED DRIVING ABILITY [None]
  - DECREASED INTEREST [None]
  - ABDOMINAL DISTENSION [None]
  - WEIGHT FLUCTUATION [None]
  - ABNORMAL BEHAVIOUR [None]
  - NIGHTMARE [None]
  - DEPRESSED MOOD [None]
  - TRAUMATIC SHOCK [None]
  - DECREASED APPETITE [None]
  - INSOMNIA [None]
  - DISTURBANCE IN ATTENTION [None]
